FAERS Safety Report 11512335 (Version 1)
Quarter: 2015Q3

REPORT INFORMATION
  Report Type: Spontaneous
  Country: BR (occurrence: BR)
  Receive Date: 20150916
  Receipt Date: 20150916
  Transmission Date: 20151125
  Serious: Yes (Other)
  Sender: FDA-Public Use
  Company Number: BR-AMGEN-BRASP2015094827

PATIENT
  Age: 30 Year
  Sex: Female
  Weight: 69 kg

DRUGS (2)
  1. ENBREL [Suspect]
     Active Substance: ETANERCEPT
     Indication: ANKYLOSING SPONDYLITIS
     Dosage: 50 MG, 1X/WEEK
     Route: 058
     Dates: start: 20150904
  2. PREDSIM [Concomitant]
     Active Substance: PREDNISOLONE
     Dosage: 5 MG (1 TABLET), DAILY

REACTIONS (7)
  - Phobia [Unknown]
  - Flushing [Unknown]
  - Disorientation [Unknown]
  - Disorganised speech [Unknown]
  - Loss of consciousness [Recovered/Resolved]
  - Pallor [Recovered/Resolved]
  - Syncope [Recovered/Resolved]

NARRATIVE: CASE EVENT DATE: 20150904
